FAERS Safety Report 16108684 (Version 1)
Quarter: 2019Q1

REPORT INFORMATION
  Report Type: Spontaneous
  Country: CN (occurrence: CN)
  Receive Date: 20190323
  Receipt Date: 20190323
  Transmission Date: 20190418
  Serious: Yes (Hospitalization)
  Sender: FDA-Public Use
  Company Number: CN-ACCORD-114192

PATIENT
  Age: 52 Year
  Sex: Male

DRUGS (1)
  1. LURASIDONE [Suspect]
     Active Substance: LURASIDONE
     Indication: DEPRESSION
     Dosage: DOSE REDUCED TO 120 MG/D AND SUBSEQUENTLY WITHDRAWN.

REACTIONS (2)
  - Delirium [Recovered/Resolved]
  - Mania [Recovered/Resolved]
